FAERS Safety Report 15129437 (Version 1)
Quarter: 2018Q3

REPORT INFORMATION
  Report Type: Spontaneous
  Country: JP (occurrence: JP)
  Receive Date: 20180711
  Receipt Date: 20180711
  Transmission Date: 20181010
  Serious: Yes (Death, Other)
  Sender: FDA-Public Use
  Company Number: JP-BAUSCH-BL-2018-018912

PATIENT
  Sex: Male

DRUGS (2)
  1. FLUOROURACIL. [Suspect]
     Active Substance: FLUOROURACIL
     Indication: GASTRIC CANCER STAGE IV
     Dosage: DAILY DOSE:  DAY 1?5, ONCE IN 4 WEEKS
     Route: 065
     Dates: start: 200707
  2. PACLITAXEL. [Suspect]
     Active Substance: PACLITAXEL
     Indication: GASTRIC CANCER STAGE IV
     Dosage: DAILY DOSE: DAY 8, 15, 22, ONCE IN A WEEK
     Route: 065
     Dates: start: 200707

REACTIONS (1)
  - Neuropathy peripheral [Unknown]
